FAERS Safety Report 6146121-7 (Version None)
Quarter: 2009Q2

REPORT INFORMATION
  Report Type: 
  Country: None (occurrence: None)
  Receive Date: 20090407
  Receipt Date: 20090401
  Transmission Date: 20091009
  Serious: Yes (Death)
  Sender: FDA-Public Use
  Company Number: CA-NOVOPROD-282059

PATIENT
  Age: 39 Year
  Sex: Female
  Weight: 70 kg

DRUGS (1)
  1. NIASTASE [Suspect]
     Indication: POSTPARTUM HAEMORRHAGE
     Dosage: 4.8 MG, TID
     Route: 042
     Dates: start: 20080826, end: 20080826

REACTIONS (1)
  - DRUG INEFFECTIVE [None]
